FAERS Safety Report 12199564 (Version 1)
Quarter: 2016Q1

REPORT INFORMATION
  Report Type: Spontaneous
  Country: GB (occurrence: GB)
  Receive Date: 20160322
  Receipt Date: 20160322
  Transmission Date: 20160526
  Serious: Yes (Other)
  Sender: FDA-Public Use
  Company Number: GB-TEVA-644960ACC

PATIENT
  Age: 33 Year
  Sex: Female
  Weight: 76.2 kg

DRUGS (2)
  1. DOXYCYCLINE. [Suspect]
     Active Substance: DOXYCYCLINE
     Indication: ACUTE SINUSITIS
     Route: 048
     Dates: start: 20151025, end: 20151026
  2. BOOTS PARACETAMOL [Concomitant]

REACTIONS (2)
  - Sinus tachycardia [Recovered/Resolved]
  - Anxiety [Recovered/Resolved with Sequelae]
